FAERS Safety Report 14673322 (Version 1)
Quarter: 2018Q1

REPORT INFORMATION
  Report Type: Spontaneous
  Country: US (occurrence: US)
  Receive Date: 20180323
  Receipt Date: 20180323
  Transmission Date: 20180509
  Serious: Yes (Death, Hospitalization, Other)
  Sender: FDA-Public Use
  Company Number: US-STRIDES ARCOLAB LIMITED-2018SP002137

PATIENT

DRUGS (6)
  1. ZOSYN [Suspect]
     Active Substance: PIPERACILLIN SODIUM\TAZOBACTAM SODIUM
     Indication: PRODUCT USED FOR UNKNOWN INDICATION
     Dosage: UNK
     Route: 065
  2. LUPRON [Concomitant]
     Active Substance: LEUPROLIDE ACETATE
     Indication: PRODUCT USED FOR UNKNOWN INDICATION
     Dosage: UNK
     Route: 065
  3. PREDNISOLONE. [Suspect]
     Active Substance: PREDNISOLONE
     Indication: PRODUCT USED FOR UNKNOWN INDICATION
     Dosage: UNK
     Route: 065
  4. ZYTIGA [Concomitant]
     Active Substance: ABIRATERONE ACETATE
     Indication: PRODUCT USED FOR UNKNOWN INDICATION
     Dosage: UNK
     Route: 065
  5. VANCOMYCIN [Suspect]
     Active Substance: VANCOMYCIN
     Indication: SEPSIS
     Dosage: UNK
     Route: 042
  6. ELIQUIS [Concomitant]
     Active Substance: APIXABAN
     Indication: PRODUCT USED FOR UNKNOWN INDICATION
     Dosage: UNK
     Route: 065

REACTIONS (16)
  - Multiple organ dysfunction syndrome [Fatal]
  - Ventricular tachycardia [Unknown]
  - Septic shock [Fatal]
  - Pyrexia [Unknown]
  - Syncope [Unknown]
  - Aspergillus infection [Unknown]
  - Renal failure [Unknown]
  - Oliguria [Unknown]
  - Aspergilloma [Unknown]
  - Anaemia [Unknown]
  - Thrombocytopenia [Unknown]
  - Dyspnoea [Unknown]
  - Acidosis [Unknown]
  - Productive cough [Unknown]
  - Pulseless electrical activity [Unknown]
  - Bronchopulmonary aspergillosis [Unknown]
